FAERS Safety Report 14306505 (Version 1)
Quarter: 2017Q4

REPORT INFORMATION
  Report Type: Report from Study
  Country: US (occurrence: US)
  Receive Date: 20171220
  Receipt Date: 20171220
  Transmission Date: 20180321
  Serious: No
  Sender: FDA-Public Use
  Company Number: US-ROCHE-2043674

PATIENT
  Age: 49 Year
  Sex: Female

DRUGS (1)
  1. OCREVUS [Suspect]
     Active Substance: OCRELIZUMAB
     Indication: MULTIPLE SCLEROSIS
     Dosage: ONGOING:YES
     Route: 042
     Dates: start: 201707

REACTIONS (5)
  - Respiratory rate increased [Unknown]
  - Urinary tract infection [Unknown]
  - Palpitations [Unknown]
  - Infusion related reaction [Recovered/Resolved]
  - Tonsillitis [Unknown]
